FAERS Safety Report 9630346 (Version 4)
Quarter: 2014Q2

REPORT INFORMATION
  Report Type: Spontaneous
  Country: PT (occurrence: PT)
  Receive Date: 20131018
  Receipt Date: 20140526
  Transmission Date: 20141212
  Serious: Yes (Death, Other)
  Sender: FDA-Public Use
  Company Number: PT-ROCHE-1289273

PATIENT
  Age: 71 Year
  Sex: Male

DRUGS (1)
  1. MABTHERA [Suspect]
     Indication: RHEUMATOID ARTHRITIS
     Dosage: FORM STRENGTH: 500 MG/500ML?1000 MG 2X CYCLE?1000 MG ON DAY 1 AND 1000 MG ON DAY 15, 6/6 MONTHS?(WIT
     Route: 042
     Dates: start: 20100118, end: 20130401

REACTIONS (3)
  - Metastatic malignant melanoma [Fatal]
  - Malignant melanoma [Unknown]
  - Lymphadenopathy [Unknown]
